FAERS Safety Report 16263774 (Version 1)
Quarter: 2019Q2

REPORT INFORMATION
  Report Type: Spontaneous
  Country: GB (occurrence: GB)
  Receive Date: 20190502
  Receipt Date: 20190502
  Transmission Date: 20190711
  Serious: Yes (Disabling)
  Sender: FDA-Public Use
  Company Number: GB-TEVA-2019-GB-1044560

PATIENT
  Age: 27 Year
  Sex: Female
  Weight: 122.9 kg

DRUGS (4)
  1. MIRTAZAPINE. [Concomitant]
     Active Substance: MIRTAZAPINE
     Dosage: 30 MILLIGRAM DAILY; EVERY NIGHT
     Dates: start: 20190327
  2. FUCIDIN H [Concomitant]
     Dosage: 3 DOSAGE FORMS DAILY; APPLY
     Dates: start: 20190315
  3. FLUOXETINE [Suspect]
     Active Substance: FLUOXETINE HYDROCHLORIDE
     Indication: DEPRESSION
     Dosage: 1 DOSAGE FORMS DAILY;
     Route: 048
     Dates: start: 20190315, end: 20190327
  4. ZOPICLONE [Concomitant]
     Active Substance: ZOPICLONE
     Dosage: 7.5 MILLIGRAM DAILY; AT NIGHT
     Dates: start: 20190315

REACTIONS (1)
  - Anger [Recovering/Resolving]

NARRATIVE: CASE EVENT DATE: 20190315
